FAERS Safety Report 8416605-7 (Version None)
Quarter: 2012Q2

REPORT INFORMATION
  Report Type: 
  Country: None (occurrence: None)
  Receive Date: 20120606
  Receipt Date: 20120531
  Transmission Date: 20120825
  Serious: No
  Sender: FDA-Public Use
  Company Number: US-BAYER-2012-055347

PATIENT
  Age: 65 Year
  Sex: Female
  Weight: 59 kg

DRUGS (3)
  1. LEVOXYL [Concomitant]
     Dosage: UNK
     Dates: start: 20120101
  2. ALEVE (CAPLET) [Suspect]
     Dosage: 1 DF, QD
     Route: 048
     Dates: start: 20120516
  3. ALEVE (CAPLET) [Suspect]
     Dosage: 1 DF, QD
     Route: 048
     Dates: start: 20120101

REACTIONS (1)
  - NO ADVERSE EVENT [None]
